FAERS Safety Report 25982537 (Version 1)
Quarter: 2025Q4

REPORT INFORMATION
  Report Type: Spontaneous
  Country: US (occurrence: US)
  Receive Date: 20251031
  Receipt Date: 20251031
  Transmission Date: 20260117
  Serious: No
  Sender: CSL BEHRING
  Company Number: US-BEH-2025222476

PATIENT
  Sex: Male

DRUGS (1)
  1. ANDEMBRY [Suspect]
     Active Substance: GARADACIMAB-GXII
     Indication: Hereditary angioedema
     Dosage: 1.5 ML, QMT
     Route: 058
     Dates: start: 20250825

REACTIONS (4)
  - Injection site erythema [Unknown]
  - Injection site discomfort [Unknown]
  - Injection site swelling [Unknown]
  - Injection site pain [Unknown]
